FAERS Safety Report 6090007-3 (Version None)
Quarter: 2009Q1

REPORT INFORMATION
  Report Type: 
  Country: None (occurrence: None)
  Receive Date: 20090220
  Receipt Date: 20090129
  Transmission Date: 20090719
  Serious: No
  Sender: FDA-Public Use
  Company Number: SPI200900037

PATIENT
  Age: 29 Year
  Sex: Female

DRUGS (2)
  1. AMITIZA [Suspect]
     Indication: IRRITABLE BOWEL SYNDROME
     Dosage: 24 MCG, BID, ORAL; 8 MCG, QD, ORAL
     Route: 048
     Dates: end: 20090101
  2. AMITIZA [Suspect]
     Indication: IRRITABLE BOWEL SYNDROME
     Dosage: 24 MCG, BID, ORAL; 8 MCG, QD, ORAL
     Route: 048
     Dates: start: 20081229

REACTIONS (3)
  - DIARRHOEA [None]
  - DYSPNOEA [None]
  - RASH [None]
